FAERS Safety Report 5762027-7 (Version None)
Quarter: 2008Q2

REPORT INFORMATION
  Report Type: 
  Country: None (occurrence: None)
  Receive Date: 20080607
  Receipt Date: 20080528
  Transmission Date: 20081010
  Serious: Yes (Death, Hospitalization)
  Sender: FDA-Public Use
  Company Number: ES-AMGEN-US272787

PATIENT
  Age: 49 Year
  Sex: Male

DRUGS (1)
  1. ENBREL [Suspect]
     Indication: PSORIATIC ARTHROPATHY
     Route: 058
     Dates: start: 20040101, end: 20080301

REACTIONS (4)
  - IRRITABILITY [None]
  - LUNG ADENOCARCINOMA METASTATIC [None]
  - OBSTRUCTIVE UROPATHY [None]
  - RENAL FAILURE [None]
